FAERS Safety Report 4569650-6 (Version None)
Quarter: 2005Q1

REPORT INFORMATION
  Report Type: 
  Country: None (occurrence: None)
  Receive Date: 20050201
  Receipt Date: 20050119
  Transmission Date: 20050727
  Serious: Yes (Hospitalization)
  Sender: FDA-Public Use
  Company Number: 2004225160IN

PATIENT
  Age: 22 Year
  Sex: Female
  Weight: 68.9921 kg

DRUGS (1)
  1. DEPO-PROVERA [Suspect]
     Indication: CONTRACEPTION
     Dosage: 150 MG (150 MG, FIRST AND LAST INJECTION); INTRAMUSCULAR
     Route: 030
     Dates: start: 20031216, end: 20031216

REACTIONS (5)
  - BLOOD PRESSURE INCREASED [None]
  - DIZZINESS [None]
  - METRORRHAGIA [None]
  - SYNCOPE [None]
  - VOMITING [None]
